FAERS Safety Report 15737244 (Version 1)
Quarter: 2018Q4

REPORT INFORMATION
  Report Type: Spontaneous
  Country: US (occurrence: US)
  Receive Date: 20181218
  Receipt Date: 20181218
  Transmission Date: 20190205
  Serious: Yes (Hospitalization, Other)
  Sender: FDA-Public Use
  Company Number: US-OTSUKA-2018_019302

PATIENT

DRUGS (3)
  1. ABILIFY [Suspect]
     Active Substance: ARIPIPRAZOLE
     Indication: BIPOLAR DISORDER
  2. INVEGA SUSTENNA [Concomitant]
     Active Substance: PALIPERIDONE PALMITATE
     Indication: PRODUCT USED FOR UNKNOWN INDICATION
     Dosage: 234 MG, QM
     Route: 065
  3. ABILIFY [Suspect]
     Active Substance: ARIPIPRAZOLE
     Indication: SCHIZOPHRENIA
     Dosage: UNK
     Route: 065
     Dates: start: 20130101, end: 20160101

REACTIONS (8)
  - Hospitalisation [Unknown]
  - Economic problem [Unknown]
  - Suicidal ideation [Unknown]
  - Compulsive sexual behaviour [Unknown]
  - Compulsive shopping [Unknown]
  - Gambling disorder [Not Recovered/Not Resolved]
  - Obsessive-compulsive disorder [Unknown]
  - Sexual dysfunction [Unknown]
